FAERS Safety Report 10564466 (Version 2)
Quarter: 2014Q4

REPORT INFORMATION
  Report Type: Spontaneous
  Country: US (occurrence: US)
  Receive Date: 20141104
  Receipt Date: 20141125
  Transmission Date: 20150529
  Serious: Yes (Other)
  Sender: FDA-Public Use
  Company Number: US-GILEAD-2014-0120995

PATIENT
  Age: 50 Year
  Sex: Male

DRUGS (2)
  1. SOVALDI [Suspect]
     Active Substance: SOFOSBUVIR
     Indication: HEPATITIS C
     Dosage: UNK
     Route: 065
     Dates: start: 201405
  2. RIBAVIRIN. [Concomitant]
     Active Substance: RIBAVIRIN
     Dosage: UNK
     Dates: start: 201405

REACTIONS (5)
  - Hepatic cancer metastatic [Unknown]
  - Hepatitis C [Unknown]
  - Drug ineffective [Unknown]
  - Depression [Unknown]
  - Abdominal pain [Unknown]

NARRATIVE: CASE EVENT DATE: 201410
